FAERS Safety Report 11201852 (Version 1)
Quarter: 2015Q2

REPORT INFORMATION
  Report Type: Spontaneous
  Country: US (occurrence: None)
  Receive Date: 20150618
  Receipt Date: 20150618
  Transmission Date: 20150821
  Serious: No
  Sender: FDA-Public Use
  Company Number: None

PATIENT
  Age: 54 Year
  Sex: Male

DRUGS (1)
  1. STIVARGA [Suspect]
     Active Substance: REGORAFENIB
     Indication: COLON CANCER
     Dosage: DAILY 21 DAYS ON AND 7 DAYS
     Route: 048
     Dates: start: 20150428

REACTIONS (1)
  - Jaundice [None]

NARRATIVE: CASE EVENT DATE: 20150616
